FAERS Safety Report 24196791 (Version 4)
Quarter: 2024Q3

REPORT INFORMATION
  Report Type: Spontaneous
  Country: ZA (occurrence: ZA)
  Receive Date: 20240810
  Receipt Date: 20240916
  Transmission Date: 20241016
  Serious: Yes (Disabling, Other)
  Sender: CELLTRION
  Company Number: ZA-CELLTRION INC.-2024ZA018776

PATIENT

DRUGS (5)
  1. INFLIXIMAB [Suspect]
     Active Substance: INFLIXIMAB
     Indication: Ankylosing spondylitis
     Dosage: 650 MG, 0 WEEKS
     Route: 042
     Dates: start: 20240425
  2. INFLIXIMAB [Suspect]
     Active Substance: INFLIXIMAB
     Dosage: 650 MG, 2 WEEKS
     Route: 042
     Dates: start: 20240510
  3. INFLIXIMAB [Suspect]
     Active Substance: INFLIXIMAB
     Dosage: 650 MG, 6 WEEKS
     Route: 042
     Dates: start: 20240606
  4. INFLIXIMAB [Suspect]
     Active Substance: INFLIXIMAB
     Dosage: 650 MG, 8 WEEKS
     Route: 042
     Dates: start: 20240801
  5. LEFLUNOMIDE [Concomitant]
     Active Substance: LEFLUNOMIDE

REACTIONS (5)
  - Spinal disorder [Recovering/Resolving]
  - Pain [Recovering/Resolving]
  - Pain [Unknown]
  - Drug ineffective [Unknown]
  - Intentional product use issue [Recovering/Resolving]

NARRATIVE: CASE EVENT DATE: 20240802
